FAERS Safety Report 19454652 (Version 1)
Quarter: 2021Q2

REPORT INFORMATION
  Report Type: Spontaneous
  Country: US (occurrence: US)
  Receive Date: 20210623
  Receipt Date: 20210623
  Transmission Date: 20210717
  Serious: No
  Sender: FDA-Public Use
  Company Number: US-ASTRAZENECA-2021A459740

PATIENT
  Age: 25502 Day
  Sex: Male
  Weight: 113.4 kg

DRUGS (2)
  1. BYDUREON BCISE [Suspect]
     Active Substance: EXENATIDE
     Indication: DIABETES MELLITUS
     Route: 058
  2. BYDUREON [Concomitant]
     Active Substance: EXENATIDE
     Dates: start: 202012

REACTIONS (4)
  - Injection site haemorrhage [Unknown]
  - Drug dose omission by device [Unknown]
  - Device issue [Unknown]
  - Device leakage [Unknown]

NARRATIVE: CASE EVENT DATE: 20210514
